FAERS Safety Report 19065575 (Version 1)
Quarter: 2021Q1

REPORT INFORMATION
  Report Type: Spontaneous
  Country: US (occurrence: US)
  Receive Date: 20210327
  Receipt Date: 20210327
  Transmission Date: 20210420
  Serious: Yes (Other)
  Sender: FDA-Public Use
  Company Number: US-SHILPA MEDICARE LIMITED-SML-US-2021-00321

PATIENT
  Age: 15 Year
  Sex: Male

DRUGS (3)
  1. IRINOTECAN, UNKNOWN [Suspect]
     Active Substance: IRINOTECAN
     Indication: EWING^S SARCOMA
     Dosage: PATIENT COMPLETED DAYS 1 TO 5 OF CYCLE 1
     Route: 065
  2. DINUTUXIMAB [Suspect]
     Active Substance: DINUTUXIMAB
     Indication: EWING^S SARCOMA
     Dosage: PATIENT COMPLETED DAYS 1 TO 5 OF CYCLE 1
     Route: 065
  3. TEMOZOLOMIDE. [Suspect]
     Active Substance: TEMOZOLOMIDE
     Indication: EWING^S SARCOMA
     Dosage: PATIENT COMPLETED DAYS 1 TO 5 OF CYCLE 1
     Route: 065

REACTIONS (4)
  - Mental status changes [Unknown]
  - Hypoxia [Unknown]
  - Pneumonia aspiration [Unknown]
  - Bacteraemia [Unknown]
